FAERS Safety Report 10671761 (Version 2)
Quarter: 2015Q2

REPORT INFORMATION
  Report Type: Report from Study
  Country: US (occurrence: US)
  Receive Date: 20141223
  Receipt Date: 20150414
  Transmission Date: 20150821
  Serious: Yes (Hospitalization, Disabling)
  Sender: FDA-Public Use
  Company Number: US-TEVA-530253USA

PATIENT
  Sex: Female

DRUGS (19)
  1. BACTRIM [Suspect]
     Active Substance: SULFAMETHOXAZOLE\TRIMETHOPRIM
     Indication: PRODUCT USED FOR UNKNOWN INDICATION
     Route: 042
  2. ASP2215 (ASP2215) TABLET [Suspect]
     Active Substance: GILTERITINIB
     Indication: ACUTE MYELOID LEUKAEMIA
     Dosage: 120 MILLIGRAM DAILY;
     Route: 048
     Dates: start: 20140928, end: 20141006
  3. ACICLOVIR [Concomitant]
     Active Substance: ACYCLOVIR
  4. MENTHOL. [Concomitant]
     Active Substance: MENTHOL
  5. ESOMEPRAZOLE [Concomitant]
     Active Substance: ESOMEPRAZOLE
  6. OMEPRAZOLE. [Concomitant]
     Active Substance: OMEPRAZOLE
  7. DOCUSATE SODIUM. [Concomitant]
     Active Substance: DOCUSATE SODIUM
  8. CAMPHOR [Concomitant]
     Active Substance: CAMPHOR
  9. MAGNESIUM [Concomitant]
     Active Substance: MAGNESIUM
  10. FENOFIBRATE. [Concomitant]
     Active Substance: FENOFIBRATE
  11. HYDROXYZINE [Concomitant]
     Active Substance: HYDROXYZINE\HYDROXYZINE HYDROCHLORIDE
  12. CARBOXYAMIDOTRIAZOLE OROTATE [Concomitant]
  13. FLULICASONE PROPIONATE [Concomitant]
  14. CASANTHRANOL [Concomitant]
     Active Substance: CASANTHRANOL
  15. PHENOL. [Concomitant]
     Active Substance: PHENOL
  16. PROCHLORPERAZINE MALEATE. [Concomitant]
     Active Substance: PROCHLORPERAZINE MALEATE
  17. ASP2215 (ASP2215) TABLET [Suspect]
     Active Substance: GILTERITINIB
     Dosage: 120 MILLIGRAM DAILY;
     Route: 048
     Dates: start: 20141013, end: 20141019
  18. CIPROFLOXACIN. [Concomitant]
     Active Substance: CIPROFLOXACIN
  19. LORAZEPAM. [Concomitant]
     Active Substance: LORAZEPAM

REACTIONS (1)
  - Hyponatraemia [Recovered/Resolved]
